FAERS Safety Report 9346945 (Version 3)
Quarter: 2014Q1

REPORT INFORMATION
  Report Type: Report from Study
  Country: JP (occurrence: JP)
  Receive Date: 20130613
  Receipt Date: 20140326
  Transmission Date: 20141002
  Serious: No
  Sender: FDA-Public Use
  Company Number: JP-JNJFOC-20130604740

PATIENT
  Age: 52 Year
  Sex: Female
  Weight: 52 kg

DRUGS (13)
  1. SIMPONI [Suspect]
     Indication: RHEUMATOID ARTHRITIS
     Route: 058
     Dates: start: 20130423, end: 20130423
  2. METHOTREXATE [Concomitant]
     Indication: RHEUMATOID ARTHRITIS
     Route: 065
     Dates: end: 20130214
  3. METHOTREXATE [Concomitant]
     Indication: RHEUMATOID ARTHRITIS
     Route: 065
     Dates: start: 20130215
  4. TACROLIMUS HYDRATE [Concomitant]
     Indication: RHEUMATOID ARTHRITIS
     Route: 065
  5. PREDONINE [Concomitant]
     Indication: RHEUMATOID ARTHRITIS
     Route: 048
  6. CELECOX [Concomitant]
     Indication: RHEUMATOID ARTHRITIS
     Route: 048
  7. ANPLAG [Concomitant]
     Route: 048
  8. PROCYLIN [Concomitant]
     Route: 048
  9. JUVELA [Concomitant]
     Route: 065
  10. PARIET [Concomitant]
     Indication: PROPHYLAXIS
     Route: 048
  11. FOSAMAC [Concomitant]
     Route: 048
  12. FOLIAMIN [Concomitant]
     Indication: PROPHYLAXIS
     Route: 065
  13. CRESTOR [Concomitant]
     Indication: HYPERCHOLESTEROLAEMIA
     Route: 048

REACTIONS (1)
  - Wound infection [Recovered/Resolved]
